FAERS Safety Report 12309644 (Version 2)
Quarter: 2016Q3

REPORT INFORMATION
  Report Type: Report from Study
  Country: CA (occurrence: CA)
  Receive Date: 20160427
  Receipt Date: 20160823
  Transmission Date: 20161109
  Serious: Yes (Death, Hospitalization)
  Sender: FDA-Public Use
  Company Number: CA-TOLMAR, INC.-2016CA003799

PATIENT

DRUGS (1)
  1. ELIGARD [Suspect]
     Active Substance: LEUPROLIDE ACETATE
     Indication: PROSTATE CANCER
     Dosage: 30 MG
     Route: 065
     Dates: start: 20150901, end: 20160105

REACTIONS (4)
  - Pruritus [Unknown]
  - General physical health deterioration [Unknown]
  - Terminal state [Fatal]
  - Oedema peripheral [Unknown]

NARRATIVE: CASE EVENT DATE: 201602
